FAERS Safety Report 5821802-0 (Version None)
Quarter: 2008Q3

REPORT INFORMATION
  Report Type: 
  Country: None (occurrence: None)
  Receive Date: 20080724
  Receipt Date: 20080124
  Transmission Date: 20090109
  Serious: No
  Sender: FDA-Public Use
  Company Number: US-BOEHRINGER INGELHEIM GMBH, GERMANY-2007-BP-07316BP

PATIENT
  Sex: Male
  Weight: 77 kg

DRUGS (10)
  1. MIRAPEX [Suspect]
     Indication: PARKINSON'S DISEASE
     Dates: start: 19990101, end: 20051201
  2. NADOLOL [Concomitant]
     Indication: PARKINSON'S DISEASE
     Dates: start: 19990801, end: 20040901
  3. NADOLOL [Concomitant]
     Dates: start: 20050228, end: 20060906
  4. NADOLOL [Concomitant]
     Dates: start: 20060101
  5. SINEMET [Concomitant]
     Indication: PARKINSON'S DISEASE
     Dates: start: 20010715
  6. SINEMET [Concomitant]
     Dates: start: 20030811
  7. BUSPAR [Concomitant]
     Dates: start: 20010601
  8. TRIHEXYPHEN [Concomitant]
     Dates: start: 20000522
  9. CARBIDOPA AND LEVODOPA [Concomitant]
     Indication: PARKINSON'S DISEASE
     Dates: start: 20000208
  10. NICOTINE [Concomitant]
     Indication: PARKINSON'S DISEASE
     Dates: start: 20011210, end: 20020201

REACTIONS (5)
  - COMPULSIVE SHOPPING [None]
  - DEPRESSION [None]
  - EMOTIONAL DISTRESS [None]
  - OBSESSIVE-COMPULSIVE DISORDER [None]
  - PATHOLOGICAL GAMBLING [None]
